FAERS Safety Report 16885713 (Version 1)
Quarter: 2019Q4

REPORT INFORMATION
  Report Type: Spontaneous
  Country: US (occurrence: US)
  Receive Date: 20191004
  Receipt Date: 20191004
  Transmission Date: 20200122
  Serious: Yes (Hospitalization, Other)
  Sender: FDA-Public Use
  Company Number: US-BAYER-2019-178520

PATIENT

DRUGS (5)
  1. FLUCONAZOLE. [Concomitant]
     Active Substance: FLUCONAZOLE
     Dosage: 400 MG, QD
     Route: 048
  2. CHLORAMPHENICOL [Suspect]
     Active Substance: CHLORAMPHENICOL
     Dosage: UNK
     Route: 042
  3. AVELOX [Suspect]
     Active Substance: MOXIFLOXACIN HYDROCHLORIDE
     Indication: BACTERIAL INFECTION
     Dosage: 400 MG, QD
     Route: 048
  4. DAPTOMYCIN. [Concomitant]
     Active Substance: DAPTOMYCIN
     Dosage: 10 MG/KG, QD
  5. MEROPENEM. [Concomitant]
     Active Substance: MEROPENEM
     Dosage: 500 MG, Q8HR

REACTIONS (1)
  - Pathogen resistance [None]
